FAERS Safety Report 7873838-6 (Version None)
Quarter: 2011Q4

REPORT INFORMATION
  Report Type: 
  Country: None (occurrence: None)
  Receive Date: 20111030
  Receipt Date: 20110511
  Transmission Date: 20120403
  Serious: No
  Sender: FDA-Public Use
  Company Number: US-AMGEN-USASP2011016228

PATIENT
  Age: 82 Year
  Sex: Female
  Weight: 61.224 kg

DRUGS (10)
  1. CARBAMAZEPINE [Concomitant]
     Dosage: 200 MG, UNK
  2. IRON [Concomitant]
     Dosage: 25 MG, UNK
  3. METFORMIN HCL [Concomitant]
     Dosage: 500 MG, UNK
  4. METOPROLOL [Concomitant]
     Dosage: 500 MG, UNK
  5. ENBREL [Suspect]
     Indication: PRODUCT USED FOR UNKNOWN INDICATION
     Dosage: 25 MG, 2 TIMES/WK
  6. MULTIVITAMIN                       /00097801/ [Concomitant]
  7. CYMBALTA [Concomitant]
     Dosage: 20 MG, UNK
  8. NORVASC [Concomitant]
     Dosage: 5 MG, UNK
  9. PRILOSEC [Concomitant]
     Dosage: 10 MG, UNK
  10. TEMAZEPAM [Concomitant]
     Dosage: 15 MG, UNK

REACTIONS (2)
  - COUGH [None]
  - LIP DRY [None]
